FAERS Safety Report 12378608 (Version 3)
Quarter: 2016Q4

REPORT INFORMATION
  Report Type: Spontaneous
  Country: FR (occurrence: FR)
  Receive Date: 20160517
  Receipt Date: 20161007
  Transmission Date: 20170207
  Serious: Yes (Hospitalization, Other)
  Sender: FDA-Public Use
  Company Number: FR-PFIZER INC-2016255029

PATIENT
  Age: 26 Year
  Sex: Female

DRUGS (9)
  1. EFFEXOR LP [Suspect]
     Active Substance: VENLAFAXINE HYDROCHLORIDE
     Dosage: 37.5 MG, 1X/DAY
     Route: 048
     Dates: start: 2008, end: 20160508
  2. ALPRAZOLAM. [Suspect]
     Active Substance: ALPRAZOLAM
     Dosage: 0.25 MG, 4X/DAY
     Route: 048
     Dates: start: 2004, end: 2008
  3. TIMOFEROL [Concomitant]
     Active Substance: ASCORBIC ACID\FERROUS SULFATE
     Dosage: 2 DF, 1X/DAY
     Dates: start: 201601
  4. VITAMIN C [Concomitant]
     Active Substance: ASCORBIC ACID
     Dosage: 500 MG, 1X/DAY
     Dates: start: 201601
  5. ALPRAZOLAM. [Suspect]
     Active Substance: ALPRAZOLAM
     Dosage: 0.25 MG, 4X/DAY
     Route: 048
     Dates: start: 2008, end: 201604
  6. SERETIDE [Concomitant]
     Active Substance: FLUTICASONE PROPIONATE\SALMETEROL XINAFOATE
     Dosage: 250 UG, 1X/DAY
     Dates: start: 2015
  7. UVEDOSE [Concomitant]
     Active Substance: CHOLECALCIFEROL
     Dosage: 1 MILLION IU, EVERY 15 DAYS, THREE TIMES, THEN EVERY 3 MONTHS
     Dates: start: 201603
  8. EFFEXOR LP [Suspect]
     Active Substance: VENLAFAXINE HYDROCHLORIDE
     Dosage: 37.5 MG, 1X/DAY
     Route: 048
     Dates: start: 2004, end: 2008
  9. DIPROSONE /00008502/ [Concomitant]
     Active Substance: BETAMETHASONE SODIUM PHOSPHATE
     Dosage: UNK
     Dates: start: 201603

REACTIONS (6)
  - Abortion spontaneous [Unknown]
  - Myalgia [Recovered/Resolved]
  - Abortion spontaneous [Unknown]
  - Asthma exercise induced [Unknown]
  - Muscular weakness [Recovered/Resolved]
  - Arthralgia [Recovered/Resolved]

NARRATIVE: CASE EVENT DATE: 2006
